FAERS Safety Report 9090288 (Version 2)
Quarter: 2013Q2

REPORT INFORMATION
  Report Type: Report from Study
  Country: US (occurrence: US)
  Receive Date: 20130131
  Receipt Date: 20130509
  Transmission Date: 20140414
  Serious: Yes (Hospitalization)
  Sender: FDA-Public Use
  Company Number: US-ABBOTT-12P-163-1022405-00

PATIENT
  Age: 28 Year
  Sex: Male
  Weight: 76.27 kg

DRUGS (4)
  1. HUMIRA [Suspect]
     Indication: CROHN^S DISEASE
     Route: 058
     Dates: start: 20101201, end: 201204
  2. HUMIRA [Suspect]
     Route: 058
  3. HUMIRA [Suspect]
  4. 6MP [Concomitant]
     Indication: PRODUCT USED FOR UNKNOWN INDICATION

REACTIONS (4)
  - Ileocolectomy [Unknown]
  - Ileectomy [Unknown]
  - Explorative laparotomy [Unknown]
  - Intestinal anastomosis [Unknown]
